FAERS Safety Report 4407347-3 (Version None)
Quarter: 2004Q3

REPORT INFORMATION
  Report Type: 
  Country: None (occurrence: None)
  Receive Date: 20040721
  Receipt Date: 20040714
  Transmission Date: 20050211
  Serious: Yes (Death, Other)
  Sender: FDA-Public Use
  Company Number: MED-04019

PATIENT
  Age: 49 Year
  Sex: Female

DRUGS (1)
  1. PREDNISONE [Suspect]
     Indication: SKIN DISORDER

REACTIONS (3)
  - FLUID RETENTION [None]
  - HEADACHE [None]
  - INSOMNIA [None]
